FAERS Safety Report 11507683 (Version 1)
Quarter: 2015Q3

REPORT INFORMATION
  Report Type: Spontaneous
  Country: US (occurrence: US)
  Receive Date: 20150903
  Receipt Date: 20150903
  Transmission Date: 20151125
  Serious: No
  Sender: FDA-Public Use
  Company Number: US-ELI_LILLY_AND_COMPANY-US200909001896

PATIENT
  Age: 11 Year
  Sex: Male

DRUGS (3)
  1. NPH INSULIN [Concomitant]
     Active Substance: INSULIN BEEF
     Dosage: UNK, EACH EVENING
  2. NPH INSULIN [Concomitant]
     Active Substance: INSULIN BEEF
     Dosage: UNK, EACH MORNING
  3. HUMALOG [Suspect]
     Active Substance: INSULIN LISPRO
     Dates: start: 20090831

REACTIONS (2)
  - Blood glucose decreased [Recovered/Resolved]
  - Abdominal pain upper [Recovered/Resolved]

NARRATIVE: CASE EVENT DATE: 20090831
